FAERS Safety Report 22065613 (Version 4)
Quarter: 2024Q4

REPORT INFORMATION
  Report Type: Spontaneous
  Country: IN (occurrence: IN)
  Receive Date: 20230306
  Receipt Date: 20241208
  Transmission Date: 20250114
  Serious: Yes (Other)
  Sender: PFIZER
  Company Number: IN-PFIZER INC-2019036060

PATIENT
  Age: 57 Year
  Sex: Male

DRUGS (9)
  1. SUTENT [Suspect]
     Active Substance: SUNITINIB MALATE
     Indication: Metastatic renal cell carcinoma
     Dosage: 50 MG, CYCLIC (DAILY, TWO WEEKS ON AND ONE WEEK OFF)
     Route: 048
     Dates: start: 20190124
  2. SUTENT [Suspect]
     Active Substance: SUNITINIB MALATE
     Dosage: 50 MG, CYCLIC (DAILY, 2/3 WEEKS)
     Route: 048
  3. SUTENT [Suspect]
     Active Substance: SUNITINIB MALATE
     Dosage: 37.5 MG, 1X/DAY FOR 3 MONTHS
     Route: 048
  4. SUTENT [Suspect]
     Active Substance: SUNITINIB MALATE
     Dosage: 37.5 MG, CYCLIC (14DAYS ON AND 7 DAYS OFF)
     Route: 048
  5. SUTENT [Suspect]
     Active Substance: SUNITINIB MALATE
     Dosage: 37.5MG OD (2 WEEKS ON 1 WEEK OFF)
     Route: 048
  6. SUTENT [Suspect]
     Active Substance: SUNITINIB MALATE
     Dosage: 37.5MG 2+1
     Route: 048
  7. SUTENT [Suspect]
     Active Substance: SUNITINIB MALATE
     Dosage: 37.5MG OD 2 WEEKS ON 1 WEEK OFF
     Route: 048
  8. LEVOTHYROXINE [Concomitant]
     Active Substance: LEVOTHYROXINE
     Dosage: 100 MG, 1X/DAY
     Route: 048
  9. MOISTUREX [Concomitant]
     Dosage: UNK

REACTIONS (13)
  - Neutropenia [Unknown]
  - Hypothyroidism [Recovering/Resolving]
  - Diabetes mellitus [Unknown]
  - Neoplasm progression [Unknown]
  - Diarrhoea [Unknown]
  - Hypertension [Unknown]
  - COVID-19 [Recovered/Resolved]
  - Jaundice [Unknown]
  - Cyanosis [Unknown]
  - Dyspnoea [Unknown]
  - Palmar-plantar erythrodysaesthesia syndrome [Unknown]
  - Asthenia [Unknown]
  - Skin disorder [Unknown]

NARRATIVE: CASE EVENT DATE: 20200101
